FAERS Safety Report 15517770 (Version 2)
Quarter: 2019Q3

REPORT INFORMATION
  Report Type: Spontaneous
  Country: US (occurrence: US)
  Receive Date: 20181017
  Receipt Date: 20190923
  Transmission Date: 20191004
  Serious: Yes (Death, Other)
  Sender: FDA-Public Use
  Company Number: US-ELI_LILLY_AND_COMPANY-US201810005629

PATIENT
  Sex: Male

DRUGS (4)
  1. CIALIS [Suspect]
     Active Substance: TADALAFIL
     Indication: ERECTILE DYSFUNCTION
     Dosage: 10 MG, PRN
     Route: 065
     Dates: start: 20050101, end: 200602
  2. VIAGRA [Suspect]
     Active Substance: SILDENAFIL CITRATE
     Dosage: 100 MG, PRN
     Route: 065
     Dates: start: 20110317, end: 201412
  3. CIALIS [Suspect]
     Active Substance: TADALAFIL
     Dosage: 20 UNK
     Route: 065
     Dates: start: 201203, end: 201301
  4. VIAGRA [Suspect]
     Active Substance: SILDENAFIL CITRATE
     Indication: ERECTILE DYSFUNCTION
     Dosage: 50 MG, PRN
     Route: 065
     Dates: start: 200603, end: 200603

REACTIONS (6)
  - Malignant melanoma in situ [Unknown]
  - Malignant melanoma in situ [Unknown]
  - Basal cell carcinoma [Unknown]
  - Depression [Unknown]
  - Neoplasm malignant [Fatal]
  - Malignant melanoma [Unknown]

NARRATIVE: CASE EVENT DATE: 20120814
